FAERS Safety Report 26062507 (Version 1)
Quarter: 2025Q4

REPORT INFORMATION
  Report Type: Spontaneous
  Country: US (occurrence: US)
  Receive Date: 20251119
  Receipt Date: 20251119
  Transmission Date: 20260118
  Serious: Yes (Other)
  Sender: RECORDATI
  Company Number: US-ORPHANEU-2025008184

PATIENT
  Age: 48 Year
  Sex: Male

DRUGS (3)
  1. SILTUXIMAB [Suspect]
     Active Substance: SILTUXIMAB
     Indication: Castleman^s disease
     Dosage: 11 MILLIGRAM/KILOGRAM, Q2W (2 WEEKLY DOSES)
     Route: 042
  2. SILTUXIMAB [Suspect]
     Active Substance: SILTUXIMAB
     Dosage: 11 MILLIGRAM/KILOGRAM, QW FOR 4 WEEKS
     Route: 042
  3. SILTUXIMAB [Suspect]
     Active Substance: SILTUXIMAB
     Dosage: 11 MILLIGRAM/KILOGRAM, Q3W
     Route: 042

REACTIONS (4)
  - Fungaemia [Unknown]
  - Cytomegalovirus viraemia [Unknown]
  - Off label use [Recovered/Resolved]
  - Therapeutic product effect incomplete [Recovered/Resolved]
